FAERS Safety Report 12278614 (Version 1)
Quarter: 2016Q2

REPORT INFORMATION
  Report Type: Spontaneous
  Country: US (occurrence: US)
  Receive Date: 20160418
  Receipt Date: 20160418
  Transmission Date: 20160815
  Serious: Yes (Other)
  Sender: FDA-Public Use
  Company Number: US-PFIZER INC-2016215668

PATIENT
  Age: 30 Year
  Sex: Female
  Weight: 59 kg

DRUGS (3)
  1. ZOLOFT [Suspect]
     Active Substance: SERTRALINE HYDROCHLORIDE
     Indication: DEPRESSION
     Dosage: 200 MG, 1X/DAY (TWO 100MG TABLETS)
     Route: 048
     Dates: start: 2005
  2. ASPIRIN /00002701/ [Suspect]
     Active Substance: ASPIRIN
     Indication: BACK PAIN
     Dosage: 2000 MG, (FOUR 500MG TABLETS)
     Route: 048
     Dates: start: 20160409
  3. ZOLOFT [Suspect]
     Active Substance: SERTRALINE HYDROCHLORIDE
     Indication: ANXIETY

REACTIONS (9)
  - Paraesthesia [Not Recovered/Not Resolved]
  - Gastritis [Not Recovered/Not Resolved]
  - Irritability [Not Recovered/Not Resolved]
  - Abdominal pain upper [Not Recovered/Not Resolved]
  - Drug withdrawal syndrome [Not Recovered/Not Resolved]
  - Nausea [Not Recovered/Not Resolved]
  - Intentional overdose [Not Recovered/Not Resolved]
  - Vomiting [Unknown]
  - Disturbance in attention [Not Recovered/Not Resolved]

NARRATIVE: CASE EVENT DATE: 20160409
